FAERS Safety Report 16844658 (Version 1)
Quarter: 2019Q3

REPORT INFORMATION
  Report Type: Spontaneous
  Country: GB (occurrence: GB)
  Receive Date: 20190924
  Receipt Date: 20190924
  Transmission Date: 20191005
  Serious: Yes (Hospitalization)
  Sender: FDA-Public Use
  Company Number: GB-SA-2019SA259049

PATIENT
  Age: 15 Year
  Sex: Male

DRUGS (7)
  1. BISOPROLOL [Concomitant]
     Active Substance: BISOPROLOL
     Dosage: 10 MG, QD
     Route: 048
  2. IRBESARTAN. [Suspect]
     Active Substance: IRBESARTAN
     Dosage: 150 MG, QD, EACH MORNING
     Route: 048
  3. GLYCERYL TRINITRATE [Concomitant]
     Active Substance: NITROGLYCERIN
     Dosage: UNK UNK, PRN, 1-2 PUFFS
     Route: 060
  4. IRBESARTAN. [Suspect]
     Active Substance: IRBESARTAN
     Dosage: UNK UNK, UNK
     Route: 065
  5. PARACETAMOL [Concomitant]
     Active Substance: ACETAMINOPHEN
     Dosage: 500MG - 1G FOUR TIMES A DAY
     Route: 048
  6. CLOPIDOGREL [Concomitant]
     Active Substance: CLOPIDOGREL BISULFATE
     Dosage: 150 MG, QD
     Route: 048
  7. APIXABAN [Concomitant]
     Active Substance: APIXABAN
     Dosage: 10 MG, QD
     Route: 048

REACTIONS (2)
  - Chest pain [Unknown]
  - Syncope [Recovered/Resolved]

NARRATIVE: CASE EVENT DATE: 20190729
